FAERS Safety Report 8313724-0 (Version None)
Quarter: 2012Q2

REPORT INFORMATION
  Report Type: 
  Country: None (occurrence: None)
  Receive Date: 20120426
  Receipt Date: 20110808
  Transmission Date: 20120825
  Serious: Yes (Other)
  Sender: FDA-Public Use
  Company Number: US-TEVA-US019068

PATIENT
  Sex: Male
  Weight: 85 kg

DRUGS (4)
  1. EFFEXOR [Concomitant]
     Indication: BIPOLAR DISORDER
     Dosage: 150 MILLIGRAM;
     Route: 048
  2. RISPERDAL [Concomitant]
     Dosage: 1 MILLIGRAM;
     Route: 048
  3. PROVIGIL [Suspect]
     Indication: SLEEP APNOEA SYNDROME
     Dosage: 100 MILLIGRAM;
     Route: 048
     Dates: start: 20061201, end: 20061201
  4. LITHIUM CARBONATE [Concomitant]
     Indication: MANIA
     Dosage: 600 MILLIGRAM;
     Route: 048

REACTIONS (5)
  - VIOLENCE-RELATED SYMPTOM [None]
  - DELUSION OF GRANDEUR [None]
  - PARANOIA [None]
  - THINKING ABNORMAL [None]
  - AMNESIA [None]
